FAERS Safety Report 17259244 (Version 2)
Quarter: 2020Q1

REPORT INFORMATION
  Report Type: Spontaneous
  Country: US (occurrence: US)
  Receive Date: 20200110
  Receipt Date: 20200127
  Transmission Date: 20200409
  Serious: No
  Sender: FDA-Public Use
  Company Number: US-SA-2020SA002148

PATIENT
  Age: 86 Year
  Sex: Female
  Weight: 66.21 kg

DRUGS (1)
  1. DUPIXENT [Suspect]
     Active Substance: DUPILUMAB
     Indication: ASTHMA
     Dosage: 300 MG, QOW
     Route: 058
     Dates: start: 201911

REACTIONS (5)
  - Asthma [Unknown]
  - Diarrhoea [Unknown]
  - Malaise [Unknown]
  - Gastroenteritis viral [Unknown]
  - Product use issue [Unknown]

NARRATIVE: CASE EVENT DATE: 20191228
